FAERS Safety Report 21179911 (Version 1)
Quarter: 2022Q3

REPORT INFORMATION
  Report Type: Spontaneous
  Country: US (occurrence: None)
  Receive Date: 20220805
  Receipt Date: 20220805
  Transmission Date: 20221026
  Serious: Yes (Other)
  Sender: FDA-Public Use
  Company Number: None

PATIENT
  Sex: Male
  Weight: 78.75 kg

DRUGS (1)
  1. ABILIFY [Suspect]
     Active Substance: ARIPIPRAZOLE
     Indication: Schizophrenia
     Dosage: OTHER FREQUENCY : EVERY 28 DAYS;?
     Dates: start: 20180801, end: 20220805

REACTIONS (5)
  - Weight increased [None]
  - Vision blurred [None]
  - Somnolence [None]
  - Fatigue [None]
  - Blood cholesterol increased [None]
